FAERS Safety Report 23229488 (Version 8)
Quarter: 2024Q2

REPORT INFORMATION
  Report Type: Other
  Country: CA (occurrence: None)
  Receive Date: 20231127
  Receipt Date: 20240426
  Transmission Date: 20240715
  Serious: No
  Sender: FDA-Public Use
  Company Number: CA-ROCHE-3464475

PATIENT
  Sex: Male

DRUGS (1)
  1. OCREVUS [Suspect]
     Active Substance: OCRELIZUMAB
     Indication: Relapsing-remitting multiple sclerosis
     Dosage: 300 MG AT DAY 0 AND 14, THEN 600 MG EVERY 6 MONTHS??LAST SUBSEQUENT DOSE RECEIVED ON 30/NOV/2023
     Route: 042
     Dates: start: 20231117

REACTIONS (3)
  - Ear infection [Unknown]
  - Influenza [Recovered/Resolved]
  - Nasopharyngitis [Unknown]
